FAERS Safety Report 9915224 (Version 1)
Quarter: 2014Q1

REPORT INFORMATION
  Report Type: Report from Study
  Country: US (occurrence: US)
  Receive Date: 20140220
  Receipt Date: 20140220
  Transmission Date: 20141002
  Serious: Yes (Other)
  Sender: FDA-Public Use
  Company Number: US-ROCHE-1301778

PATIENT
  Sex: Male

DRUGS (4)
  1. LUCENTIS [Suspect]
     Indication: DIABETIC RETINOPATHY
     Route: 050
     Dates: start: 20130306
  2. LUCENTIS [Suspect]
     Indication: DIABETIC RETINAL OEDEMA
     Dosage: RECEIVED LUCENTIS IN HIS RIGHT EYE
     Route: 050
     Dates: start: 20100708
  3. LUCENTIS [Suspect]
     Dosage: LUCENTIS IN HIS LEFT EYE
     Route: 050
     Dates: start: 20100414
  4. AVASTIN [Suspect]
     Indication: DIABETIC RETINAL OEDEMA
     Dosage: RECEIVED IN HIS RIGHT EYE
     Route: 050
     Dates: start: 20120307

REACTIONS (2)
  - Macular oedema [Unknown]
  - Off label use [Unknown]
